FAERS Safety Report 8268808-2 (Version None)
Quarter: 2012Q2

REPORT INFORMATION
  Report Type: 
  Country: None (occurrence: None)
  Receive Date: 20120409
  Receipt Date: 20120409
  Transmission Date: 20120825
  Serious: Yes (Other)
  Sender: FDA-Public Use
  Company Number: None

PATIENT
  Age: 64 Year
  Sex: Female
  Weight: 56.245 kg

DRUGS (1)
  1. ACTONEL [Suspect]
     Indication: OSTEOPOROSIS
     Dosage: 150MG
     Route: 048
     Dates: start: 20120328, end: 20120328

REACTIONS (10)
  - ABDOMINAL PAIN UPPER [None]
  - FATIGUE [None]
  - VOMITING [None]
  - BONE PAIN [None]
  - NECK PAIN [None]
  - MUSCULOSKELETAL PAIN [None]
  - NAUSEA [None]
  - TINNITUS [None]
  - DIARRHOEA [None]
  - PARAESTHESIA [None]
